FAERS Safety Report 5640281-X (Version None)
Quarter: 2008Q1

REPORT INFORMATION
  Report Type: 
  Country: None (occurrence: None)
  Receive Date: 20080227
  Receipt Date: 20080123
  Transmission Date: 20080703
  Serious: No
  Sender: FDA-Public Use
  Company Number: US-BAXTER-2008BH000171

PATIENT
  Age: 30 Year
  Sex: Male
  Weight: 108 kg

DRUGS (6)
  1. HEPARIN SODIUM [Suspect]
     Indication: THROMBOSIS PROPHYLAXIS
     Dosage: DOSE UNIT:UNKNOWN
     Route: 010
     Dates: start: 20071226
  2. HEPARIN SODIUM [Suspect]
     Dosage: DOSE UNIT:UNKNOWN
     Route: 010
     Dates: start: 20071226
  3. HEPARIN SODIUM [Suspect]
     Dosage: DOSE UNIT:UNKNOWN
     Route: 010
     Dates: start: 20071230, end: 20071230
  4. HEPARIN SODIUM [Suspect]
     Dosage: DOSE UNIT:UNKNOWN
     Route: 010
     Dates: start: 20071230, end: 20071230
  5. HEPARIN SODIUM [Suspect]
     Dosage: DOSE UNIT:UNKNOWN
     Route: 010
     Dates: start: 20080102
  6. HEPARIN SODIUM [Suspect]
     Dosage: DOSE UNIT:UNKNOWN
     Route: 010
     Dates: start: 20080102

REACTIONS (7)
  - ABDOMINAL PAIN [None]
  - BLOOD PRESSURE DECREASED [None]
  - BURNING SENSATION [None]
  - DYSPNOEA [None]
  - HYPERHIDROSIS [None]
  - PARAESTHESIA [None]
  - RESTLESSNESS [None]
